FAERS Safety Report 6439938-2 (Version None)
Quarter: 2009Q4

REPORT INFORMATION
  Report Type: 
  Country: None (occurrence: None)
  Receive Date: 20091112
  Receipt Date: 20091112
  Transmission Date: 20100525
  Serious: Yes (Hospitalization)
  Sender: FDA-Public Use
  Company Number: None

PATIENT
  Age: 87 Year
  Sex: Female
  Weight: 52.2 kg

DRUGS (8)
  1. DOCETAXEL [Suspect]
     Indication: NON-SMALL CELL LUNG CANCER
     Dosage: 75MG/M2 IV Q 21 X 4CYCLE
     Route: 042
     Dates: start: 20090609, end: 20090811
  2. APRICOXIB/PLACEBO [Suspect]
     Dosage: 400MG PO DAILY
     Route: 048
     Dates: start: 20090609, end: 20091013
  3. METOPROLOL TARTRATE [Concomitant]
  4. PROCARDIA XL [Concomitant]
  5. CALCIUM CARBONATE [Concomitant]
  6. COLACE PRN [Concomitant]
  7. PERCOCET [Concomitant]
  8. COMPAZINE PRN [Concomitant]

REACTIONS (5)
  - ANAEMIA [None]
  - ASTHENIA [None]
  - FALL [None]
  - HYPERCALCAEMIA [None]
  - URINARY TRACT INFECTION [None]
